FAERS Safety Report 25468267 (Version 1)
Quarter: 2025Q2

REPORT INFORMATION
  Report Type: Spontaneous
  Country: US (occurrence: None)
  Receive Date: 20250620
  Receipt Date: 20250620
  Transmission Date: 20250716
  Serious: No
  Sender: FDA-CTU
  Company Number: None

PATIENT
  Age: 79 Year
  Sex: Female
  Weight: 49.5 kg

DRUGS (23)
  1. SCOPOLAMINE TRANSDERMAL SYSTEM [Suspect]
     Active Substance: SCOPOLAMINE
     Indication: Motion sickness
     Route: 061
     Dates: start: 20250530, end: 20250608
  2. METOPROLOL [Concomitant]
     Active Substance: METOPROLOL
  3. NIFEDIPINE [Concomitant]
     Active Substance: NIFEDIPINE
  4. QVAR [Concomitant]
     Active Substance: BECLOMETHASONE DIPROPIONATE
  5. SPIRIVA RESPIMAT [Concomitant]
     Active Substance: TIOTROPIUM BROMIDE
  6. ROSUVASTATIN CALCIUM [Concomitant]
     Active Substance: ROSUVASTATIN CALCIUM
  7. ROCKLATAN [Concomitant]
     Active Substance: LATANOPROST\NETARSUDIL MESYLATE
  8. Ketoconasole shampoo [Concomitant]
  9. Pro Air Albuterol [Concomitant]
  10. RECLAST [Concomitant]
     Active Substance: ZOLEDRONIC ACID
  11. JUBLIA [Concomitant]
     Active Substance: EFINACONAZOLE
  12. UREA [Concomitant]
     Active Substance: UREA
  13. LIDOCAINE [Concomitant]
     Active Substance: LIDOCAINE
  14. FISH OIL [Concomitant]
     Active Substance: FISH OIL
  15. ASCORBIC ACID [Concomitant]
     Active Substance: ASCORBIC ACID
  16. CALCIUM CITRATE [Concomitant]
     Active Substance: CALCIUM CITRATE
  17. MAGNESIUM GLYCINATE [Concomitant]
     Active Substance: MAGNESIUM GLYCINATE
  18. miralax, [Concomitant]
  19. VITAMIN D3 [Concomitant]
     Active Substance: CHOLECALCIFEROL
  20. CYANOCOBALAMIN\DEXPANTHENOL\NIACINAMIDE\PYRIDOXINE HYDROCHLORIDE\RIBOF [Concomitant]
     Active Substance: CYANOCOBALAMIN\DEXPANTHENOL\NIACINAMIDE\PYRIDOXINE HYDROCHLORIDE\RIBOFLAVIN 5^-PHOSPHATE SODIUM\THIA
  21. HERBALS\TURMERIC [Concomitant]
     Active Substance: HERBALS\TURMERIC
  22. Vision MD [Concomitant]
  23. fexofenidine [Concomitant]

REACTIONS (1)
  - Feeling abnormal [None]

NARRATIVE: CASE EVENT DATE: 20250607
